FAERS Safety Report 16120636 (Version 1)
Quarter: 2019Q1

REPORT INFORMATION
  Report Type: Spontaneous
  Country: FR (occurrence: FR)
  Receive Date: 20190327
  Receipt Date: 20190327
  Transmission Date: 20190418
  Serious: Yes (Other)
  Sender: FDA-Public Use
  Company Number: FR-PROVELL PHARMACEUTICALS-2064708

PATIENT
  Age: 56 Year
  Sex: Female

DRUGS (2)
  1. EUTHYROX [Suspect]
     Active Substance: LEVOTHYROXINE SODIUM
     Dates: start: 201710
  2. EUTHYROX [Suspect]
     Active Substance: LEVOTHYROXINE SODIUM
     Indication: THYROIDITIS
     Dates: start: 201703, end: 201710

REACTIONS (19)
  - Blood thyroid stimulating hormone increased [Recovered/Resolved]
  - Headache [Not Recovered/Not Resolved]
  - Glycosylated haemoglobin increased [None]
  - Gastrooesophageal reflux disease [Not Recovered/Not Resolved]
  - Decreased appetite [Not Recovered/Not Resolved]
  - Blood glucose increased [None]
  - Abdominal pain upper [Not Recovered/Not Resolved]
  - Fatigue [Not Recovered/Not Resolved]
  - Hiatus hernia [None]
  - Alopecia [Not Recovered/Not Resolved]
  - Impaired work ability [Not Recovered/Not Resolved]
  - Insomnia [Not Recovered/Not Resolved]
  - Major depression [Not Recovered/Not Resolved]
  - Helicobacter gastritis [None]
  - Asthenia [Not Recovered/Not Resolved]
  - Diverticulum intestinal [None]
  - Blood thyroid stimulating hormone decreased [Recovered/Resolved]
  - Nervousness [Not Recovered/Not Resolved]
  - Weight decreased [Not Recovered/Not Resolved]

NARRATIVE: CASE EVENT DATE: 2017
